FAERS Safety Report 4498030-7 (Version None)
Quarter: 2004Q4

REPORT INFORMATION
  Report Type: 
  Country: None (occurrence: None)
  Receive Date: 20041109
  Receipt Date: 20041109
  Transmission Date: 20050328
  Serious: No
  Sender: FDA-Public Use
  Company Number: None

PATIENT
  Age: 69 Year
  Sex: Female
  Weight: 106.5953 kg

DRUGS (2)
  1. LEVOTHYROXINE 100 MCG [Suspect]
     Indication: HYPOTHYROIDISM
     Dosage: 100 MCG QD
  2. GABAPENTIN [Suspect]
     Indication: NEUROPATHY
     Dosage: 100 MG PO BID
     Route: 048

REACTIONS (3)
  - HEADACHE [None]
  - NAUSEA [None]
  - PHARMACEUTICAL PRODUCT COMPLAINT [None]
